FAERS Safety Report 5360042-9 (Version None)
Quarter: 2007Q2

REPORT INFORMATION
  Report Type: 
  Country: None (occurrence: None)
  Receive Date: 20070614
  Receipt Date: 20070530
  Transmission Date: 20071010
  Serious: No
  Sender: FDA-Public Use
  Company Number: 2007S1000714

PATIENT
  Age: 69 Year
  Sex: Female
  Weight: 77.1115 kg

DRUGS (2)
  1. METHOTREXATE [Suspect]
     Indication: RHEUMATOID ARTHRITIS
     Dosage: 2.5 MG; UNKNOWN; ORAL
     Route: 048
     Dates: start: 20061110, end: 20070119
  2. FOLIC ACID [Concomitant]

REACTIONS (24)
  - CHEST PAIN [None]
  - COUGH [None]
  - EAR DISCOMFORT [None]
  - EAR PAIN [None]
  - GAIT DISTURBANCE [None]
  - HALLUCINATION, VISUAL [None]
  - HEADACHE [None]
  - INTRAOCULAR PRESSURE INCREASED [None]
  - LIP BLISTER [None]
  - LIP DISCOLOURATION [None]
  - LIP DRY [None]
  - MENTAL STATUS CHANGES [None]
  - MOUTH ULCERATION [None]
  - MUSCLE TIGHTNESS [None]
  - NERVE INJURY [None]
  - NODULE ON EXTREMITY [None]
  - OBSESSIVE-COMPULSIVE DISORDER [None]
  - OEDEMA PERIPHERAL [None]
  - PAIN IN EXTREMITY [None]
  - PARAESTHESIA [None]
  - PHARMACEUTICAL PRODUCT COMPLAINT [None]
  - SWELLING FACE [None]
  - TONGUE BLISTERING [None]
  - VITREOUS FLOATERS [None]
